FAERS Safety Report 7275154-2 (Version None)
Quarter: 2011Q1

REPORT INFORMATION
  Report Type: 
  Country: None (occurrence: None)
  Receive Date: 20110204
  Receipt Date: 20110125
  Transmission Date: 20110831
  Serious: Yes (Other)
  Sender: FDA-Public Use
  Company Number: PHHY2010US74095

PATIENT
  Sex: Female

DRUGS (7)
  1. DARVOCET-N 100 [Concomitant]
     Indication: BACK PAIN
  2. OMEPRAZOLE [Concomitant]
  3. MULTI-VITAMINS [Concomitant]
  4. EXTAVIA [Suspect]
     Indication: MULTIPLE SCLEROSIS
     Dosage: 0.1875  MG, QOD
     Route: 058
     Dates: start: 20100928
  5. EXTAVIA [Suspect]
     Dosage: 0.25 MG, QOD
     Route: 058
  6. TYLENOL-500 [Concomitant]
  7. ANTIHYPERTENSIVES [Concomitant]

REACTIONS (11)
  - CONTUSION [None]
  - INJECTION SITE PAIN [None]
  - INJECTION SITE SWELLING [None]
  - HYPOKINESIA [None]
  - INJECTION SITE DISCOLOURATION [None]
  - INSOMNIA [None]
  - SPINAL DISORDER [None]
  - BLEPHAROSPASM [None]
  - DYSSTASIA [None]
  - GAIT DISTURBANCE [None]
  - BACK PAIN [None]
